FAERS Safety Report 4639727-5 (Version None)
Quarter: 2005Q2

REPORT INFORMATION
  Report Type: 
  Country: None (occurrence: None)
  Receive Date: 20050328
  Receipt Date: 20041228
  Transmission Date: 20051028
  Serious: No
  Sender: FDA-Public Use
  Company Number: USA041287036

PATIENT
  Age: 11 Year
  Sex: Male
  Weight: 59 kg

DRUGS (4)
  1. STRATTERA [Suspect]
     Indication: ATTENTION DEFICIT/HYPERACTIVITY DISORDER
     Dosage: 80 MG DAY
     Dates: start: 20030101
  2. ZYPREXA [Concomitant]
  3. ABILIFY (ARIPIRAZOLE) [Concomitant]
  4. ZOLOFT [Concomitant]

REACTIONS (2)
  - AGGRESSION [None]
  - HOSTILITY [None]
